FAERS Safety Report 13396962 (Version 1)
Quarter: 2017Q2

REPORT INFORMATION
  Report Type: Other
  Country: US (occurrence: US)
  Receive Date: 20170403
  Receipt Date: 20170403
  Transmission Date: 20170830
  Serious: Yes (Other)
  Sender: FDA-Public Use
  Company Number: US-BECTON DICKINSON-2017BDN00099

PATIENT
  Age: 21 Year
  Sex: Female
  Weight: 65.76 kg

DRUGS (3)
  1. CHLORAPREP WITH TINT [Suspect]
     Active Substance: CHLORHEXIDINE GLUCONATE\ISOPROPYL ALCOHOL
     Indication: INFECTION PROPHYLAXIS
     Dosage: UNK
     Route: 061
     Dates: start: 20161212, end: 20161212
  2. BD EZ SCRUB 107 4% CHG [Concomitant]
  3. TRI-SPRINTEC [Concomitant]
     Active Substance: ETHINYL ESTRADIOL\NORGESTIMATE
     Dosage: UNK, 1X/DAY

REACTIONS (3)
  - Application site rash [Recovering/Resolving]
  - Hypersensitivity [Recovering/Resolving]
  - Application site vesicles [Recovering/Resolving]

NARRATIVE: CASE EVENT DATE: 20161212
